FAERS Safety Report 23563432 (Version 2)
Quarter: 2024Q2

REPORT INFORMATION
  Report Type: Spontaneous
  Country: AU (occurrence: AU)
  Receive Date: 20240226
  Receipt Date: 20240410
  Transmission Date: 20240715
  Serious: Yes (Other)
  Sender: FDA-Public Use
  Company Number: AU-NOVOPROD-1180052

PATIENT
  Sex: Male

DRUGS (2)
  1. FIASP [Suspect]
     Active Substance: INSULIN ASPART
     Indication: Product used for unknown indication
     Dosage: 10 IU, TID(3 TIMES A DAY BEFORE MEALS)
  2. FIASP [Suspect]
     Active Substance: INSULIN ASPART
     Dosage: 30 IU(DOSE INCREASED)

REACTIONS (1)
  - Neoplasm malignant [Unknown]
